FAERS Safety Report 8369910-7 (Version None)
Quarter: 2012Q2

REPORT INFORMATION
  Report Type: 
  Country: None (occurrence: None)
  Receive Date: 20120518
  Receipt Date: 20120515
  Transmission Date: 20120825
  Serious: Yes (Death, Other)
  Sender: FDA-Public Use
  Company Number: US-ROXANE LABORATORIES, INC.-2012-RO-01060RO

PATIENT
  Sex: Female

DRUGS (1)
  1. MORPHINE [Suspect]
     Route: 048

REACTIONS (3)
  - DEATH [None]
  - ORAL DISCOMFORT [None]
  - COMA [None]
